FAERS Safety Report 9890048 (Version 1)
Quarter: 2014Q1

REPORT INFORMATION
  Report Type: Spontaneous
  Country: US (occurrence: US)
  Receive Date: 20140212
  Receipt Date: 20140212
  Transmission Date: 20141002
  Serious: No
  Sender: FDA-Public Use
  Company Number: US-BIOGENIDEC-2014BI011010

PATIENT
  Age: 59 Year
  Sex: Female

DRUGS (11)
  1. TECFIDERA [Suspect]
     Indication: MULTIPLE SCLEROSIS
     Route: 048
     Dates: start: 20131114
  2. LEXAPRO [Concomitant]
  3. SINGULAIR [Concomitant]
  4. LEVOTHYROXINE [Concomitant]
  5. ALDACTONE [Concomitant]
  6. BIOTEN [Concomitant]
  7. VITAMIN D3 [Concomitant]
  8. NASONEX [Concomitant]
  9. PULMICORT [Concomitant]
  10. PROVENTIL [Concomitant]
  11. LUNESTA [Concomitant]

REACTIONS (5)
  - Depression [Unknown]
  - Dizziness [Unknown]
  - Fatigue [Unknown]
  - Diarrhoea [Unknown]
  - Flushing [Unknown]
